FAERS Safety Report 5447446-0 (Version None)
Quarter: 2007Q3

REPORT INFORMATION
  Report Type: 
  Country: None (occurrence: None)
  Receive Date: 20070910
  Receipt Date: 20070830
  Transmission Date: 20080115
  Serious: Yes (Other)
  Sender: FDA-Public Use
  Company Number: CA-JNJFOC-20070401246

PATIENT
  Age: 47 Year
  Sex: Female

DRUGS (13)
  1. REMICADE [Suspect]
     Route: 042
  2. REMICADE [Suspect]
     Route: 042
  3. REMICADE [Suspect]
     Route: 042
  4. REMICADE [Suspect]
     Route: 042
  5. REMICADE [Suspect]
     Indication: RHEUMATOID ARTHRITIS
     Route: 042
  6. ELAVIL [Concomitant]
  7. CALCIUM AND VITAMIN D [Concomitant]
  8. LEUCOVORIN CALCIUM [Concomitant]
  9. METHOTREXATE [Concomitant]
  10. LASIX [Concomitant]
  11. ACTONEL [Concomitant]
  12. PREDNISONE [Concomitant]
  13. LOSEC [Concomitant]

REACTIONS (2)
  - FALL [None]
  - MUSCULAR WEAKNESS [None]
